FAERS Safety Report 6008571-9 (Version None)
Quarter: 2008Q4

REPORT INFORMATION
  Report Type: 
  Country: None (occurrence: None)
  Receive Date: 20081217
  Receipt Date: 20081209
  Transmission Date: 20090506
  Serious: Yes (Disabling)
  Sender: FDA-Public Use
  Company Number: AU-B.I. PHARMACEUTICALS,INC./RIDGEFIELD-2008-BP-18494AU

PATIENT
  Sex: Male

DRUGS (3)
  1. ASASANTIN SR [Suspect]
     Indication: CEREBROVASCULAR ACCIDENT PROPHYLAXIS
  2. LIPITOR [Concomitant]
  3. CHAMPIX [Concomitant]

REACTIONS (2)
  - ABASIA [None]
  - BLOOD PRESSURE DECREASED [None]
